FAERS Safety Report 6477063-5 (Version None)
Quarter: 2009Q4

REPORT INFORMATION
  Report Type: 
  Country: None (occurrence: None)
  Receive Date: 20091207
  Receipt Date: 20091124
  Transmission Date: 20100525
  Serious: Yes (Other)
  Sender: FDA-Public Use
  Company Number: GR-ELI_LILLY_AND_COMPANY-GR200909002549

PATIENT
  Age: 25 Year
  Sex: Male

DRUGS (8)
  1. ZYPREXA [Suspect]
     Indication: PSYCHOTIC DISORDER
     Dosage: 30 MG, DAILY (1/D)
     Route: 048
     Dates: start: 20090201, end: 20090923
  2. ZYPREXA [Suspect]
     Dosage: 20 MG, DAILY (1/D)
     Route: 048
     Dates: start: 20090923, end: 20090101
  3. ZYPREXA [Suspect]
     Dosage: 15 MG, DAILY (1/D)
     Route: 048
     Dates: start: 20090101
  4. KEPPRA [Concomitant]
     Indication: PSYCHOTIC DISORDER
     Dosage: 1000 MG, 3/D
     Route: 048
     Dates: start: 20090201, end: 20090801
  5. KEPPRA [Concomitant]
     Dosage: 2500 MG, DAILY (1/D)
     Route: 048
     Dates: start: 20090801
  6. DEPAKIN [Concomitant]
     Indication: PSYCHOTIC DISORDER
     Dosage: 2500 MG, DAILY (1/D)
     Route: 048
     Dates: start: 20090201, end: 20090801
  7. DEPAKIN [Concomitant]
     Dosage: 1500 MG, DAILY (1/D)
     Route: 048
     Dates: start: 20090801, end: 20090101
  8. LEPONEX [Concomitant]
     Indication: PSYCHOTIC DISORDER
     Dosage: UNK, DAILY (1/D)
     Route: 048
     Dates: start: 20090201, end: 20090801

REACTIONS (4)
  - DIFFERENTIAL WHITE BLOOD CELL COUNT ABNORMAL [None]
  - HAEMATOCRIT DECREASED [None]
  - OVERDOSE [None]
  - PLATELET COUNT DECREASED [None]
